FAERS Safety Report 8799065 (Version 5)
Quarter: 2013Q2

REPORT INFORMATION
  Report Type: Report from Study
  Country: JP (occurrence: JP)
  Receive Date: 20120920
  Receipt Date: 20130611
  Transmission Date: 20140414
  Serious: Yes (Hospitalization, Other)
  Sender: FDA-Public Use
  Company Number: JP-VERTEX PHARMACEUTICAL INC.-AE-2012-006322

PATIENT
  Age: 61 Year
  Sex: Male

DRUGS (11)
  1. VX-950 (TELAPREVIR) [Suspect]
     Indication: CHRONIC HEPATITIS C
     Dosage: 2250 MG, QD
     Route: 048
     Dates: start: 20120306, end: 20120507
  2. VX-950 (TELAPREVIR) [Suspect]
     Dosage: 2250 MG, QD
     Route: 048
     Dates: start: 20120515, end: 20120604
  3. REBETOL [Suspect]
     Indication: CHRONIC HEPATITIS C
     Dosage: 800 MG, QD
     Route: 048
     Dates: start: 20120305, end: 20120507
  4. REBETOL [Suspect]
     Dosage: 800 MG, QD
     Route: 048
     Dates: start: 20120515
  5. PEGINTRON [Suspect]
     Indication: CHRONIC HEPATITIS C
     Dosage: 1.5 ?G/KG, QW
     Route: 058
     Dates: start: 20120306, end: 20120313
  6. PEGINTRON [Suspect]
     Dosage: 0.75 ?G/KG, QW
     Route: 058
     Dates: start: 20120320, end: 20120501
  7. PEGINTRON [Suspect]
     Dosage: 0.75 ?G/KG, QW
     Route: 058
     Dates: start: 20120515
  8. PARIET [Concomitant]
     Dosage: 10 MG, QD
     Route: 048
     Dates: start: 20091019
  9. ATARAX [Concomitant]
     Dosage: 20 MG, QD
     Route: 048
     Dates: start: 20120305
  10. ALLEGRA [Concomitant]
     Dosage: 120 MG, QD
     Route: 048
     Dates: start: 20120305
  11. MH OINTMENT [Concomitant]
     Dosage: UNK, PRN
     Route: 061
     Dates: start: 20120305

REACTIONS (4)
  - Decreased appetite [Recovered/Resolved]
  - Platelet count decreased [Recovered/Resolved]
  - Blood uric acid increased [Recovered/Resolved]
  - Pneumonia [Recovered/Resolved]
